FAERS Safety Report 7251457-2 (Version None)
Quarter: 2011Q1

REPORT INFORMATION
  Report Type: 
  Country: None (occurrence: None)
  Receive Date: 20110128
  Receipt Date: 20110119
  Transmission Date: 20110831
  Serious: Yes (Other)
  Sender: FDA-Public Use
  Company Number: PHHY2010MX49547

PATIENT
  Sex: Female

DRUGS (1)
  1. EXJADE [Suspect]
     Indication: IRON OVERLOAD
     Dosage: 125 MG,  1 TABLET
     Route: 048
     Dates: end: 20100701

REACTIONS (5)
  - MOOD SWINGS [None]
  - POLLAKIURIA [None]
  - CRYING [None]
  - DEPRESSION [None]
  - TREMOR [None]
